FAERS Safety Report 9037103 (Version 2)
Quarter: 2013Q1

REPORT INFORMATION
  Report Type: Spontaneous
  Country: CA (occurrence: None)
  Receive Date: 20121211
  Receipt Date: 20130211
  Transmission Date: 20140127
  Serious: Yes (Hospitalization)
  Sender: FDA-Public Use
  Company Number: 2012034183

PATIENT
  Age: 55 Year
  Sex: Female

DRUGS (10)
  1. PRIVIGEN [Suspect]
     Dosage: 75 G TOTAL, INTRAVANEOUS (NOT OTHERWISE SPECIFIED)
     Route: 042
  2. COVERSYL [Concomitant]
  3. CRESTOR /01588601/ (ROSUVASTATIN) [Concomitant]
  4. DOCUSATE SODIUM (DOCUSATE SODIUM) [Concomitant]
  5. FERROUS GLUCONATE (FERROUS GLUCONATE) [Concomitant]
  6. VITAMINS [Concomitant]
  7. ONE ALPHA (ALFACALCIDOL) [Concomitant]
  8. PANTOPRAZOLE (PANTOPRAZOLE) [Concomitant]
  9. SIMVASTATIN (SIMVASTATIN) [Concomitant]
  10. VITAMIN D (ERGOCALCIFEROL) [Concomitant]

REACTIONS (2)
  - Haemoglobin decreased [None]
  - Anti-erythrocyte antibody positive [None]
